FAERS Safety Report 16685632 (Version 1)
Quarter: 2019Q3

REPORT INFORMATION
  Report Type: Spontaneous
  Country: US (occurrence: US)
  Receive Date: 20190809
  Receipt Date: 20190809
  Transmission Date: 20191004
  Serious: No
  Sender: FDA-Public Use
  Company Number: US-SA-2019SA211437

PATIENT
  Sex: Female

DRUGS (1)
  1. DUPIXENT [Suspect]
     Active Substance: DUPILUMAB
     Indication: DERMATITIS ATOPIC
     Dosage: 1 DF, QOW
     Route: 058
     Dates: start: 201712

REACTIONS (6)
  - General physical health deterioration [Unknown]
  - Pain of skin [Unknown]
  - Dry skin [Unknown]
  - Skin disorder [Unknown]
  - Pruritus [Unknown]
  - Scratch [Unknown]
